FAERS Safety Report 5508328-9 (Version None)
Quarter: 2007Q4

REPORT INFORMATION
  Report Type: 
  Country: None (occurrence: None)
  Receive Date: 20071106
  Receipt Date: 20071026
  Transmission Date: 20080405
  Serious: Yes (Hospitalization, Other)
  Sender: FDA-Public Use
  Company Number: HQWYE271021SEP07

PATIENT
  Sex: Female

DRUGS (6)
  1. ENBREL [Suspect]
     Indication: RHEUMATOID ARTHRITIS
     Route: 058
     Dates: start: 20011126, end: 20070801
  2. ENBREL [Suspect]
     Route: 058
     Dates: start: 20070901
  3. LODINE [Suspect]
     Indication: PAIN
     Dosage: UNKNOWN
     Route: 048
  4. INDOCIN [Suspect]
     Indication: BACK PAIN
     Dosage: UNKNOWN
     Route: 048
  5. ARAVA [Concomitant]
     Route: 048
  6. VOLTAREN [Suspect]
     Indication: PAIN
     Dosage: UNKNOWN
     Route: 048

REACTIONS (20)
  - BACK PAIN [None]
  - BURSITIS [None]
  - CERVICOBRACHIAL SYNDROME [None]
  - CLAVICLE FRACTURE [None]
  - CONDITION AGGRAVATED [None]
  - DEEP VEIN THROMBOSIS [None]
  - EYE SWELLING [None]
  - FALL [None]
  - HEADACHE [None]
  - HYPOAESTHESIA [None]
  - LORDOSIS [None]
  - OEDEMA [None]
  - OSTEOARTHRITIS [None]
  - PAIN IN EXTREMITY [None]
  - PYREXIA [None]
  - RHEUMATOID ARTHRITIS [None]
  - ROTATOR CUFF SYNDROME [None]
  - SCOLIOSIS [None]
  - SPINAL FUSION SURGERY [None]
  - SPINAL OSTEOARTHRITIS [None]
